FAERS Safety Report 15041783 (Version 1)
Quarter: 2018Q2

REPORT INFORMATION
  Report Type: Spontaneous
  Country: US (occurrence: US)
  Receive Date: 20180621
  Receipt Date: 20180621
  Transmission Date: 20180711
  Serious: No
  Sender: FDA-Public Use
  Company Number: US-ASTRAZENECA-2018SE70019

PATIENT
  Sex: Male

DRUGS (1)
  1. SYMBICORT [Suspect]
     Active Substance: BUDESONIDE\FORMOTEROL FUMARATE DIHYDRATE
     Indication: ASTHMA
     Dosage: 160/4.5MCG , 2 PUFFS TWICE A DAY
     Route: 055

REACTIONS (4)
  - Wheezing [Unknown]
  - Device issue [Unknown]
  - Asthma [Unknown]
  - Incorrect dose administered by device [Unknown]
